FAERS Safety Report 8792580 (Version 2)
Quarter: 2013Q2

REPORT INFORMATION
  Report Type: Spontaneous
  Country: US (occurrence: US)
  Receive Date: 20120918
  Receipt Date: 20130425
  Transmission Date: 20140414
  Serious: Yes (Hospitalization, Other)
  Sender: FDA-Public Use
  Company Number: US-AMGEN-USASP2012058035

PATIENT
  Age: 66 Year
  Sex: Male

DRUGS (10)
  1. NEUPOGEN [Suspect]
     Indication: NEUTROPENIA
     Dosage: 480 MUG, FOR 5 DAYS ON DAYS 15-19
  2. PEGFILGRASTIM [Concomitant]
     Indication: PRODUCT USED FOR UNKNOWN INDICATION
     Dosage: UNK
  3. CYTARABINE [Concomitant]
     Indication: ACUTE MYELOID LEUKAEMIA
     Dosage: 200 MG/M2, DAYS 1-7
  4. DAUNORUBICIN [Concomitant]
     Indication: ACUTE MYELOID LEUKAEMIA
     Dosage: 90 MG/M2, DAYS 2-4
  5. RASBURICASE [Concomitant]
     Dosage: UNK
  6. DEXTROSE [Concomitant]
     Indication: FLUID REPLACEMENT
     Dosage: 5 %, UNK
  7. SODIUM BICARBONATE [Concomitant]
     Indication: FLUID REPLACEMENT
     Dosage: 125 MLS/HR
  8. VORICONAZOLE [Concomitant]
     Indication: PYREXIA
     Dosage: UNK
  9. CEFEPIME [Concomitant]
     Indication: PYREXIA
     Dosage: UNK
  10. VANCOMYCIN [Concomitant]
     Indication: PYREXIA
     Dosage: UNK

REACTIONS (7)
  - Bone marrow necrosis [Recovered/Resolved]
  - Neutrophilia [Unknown]
  - Monocytosis [Unknown]
  - Leukoerythroblastic anaemia [Unknown]
  - Reticulocytopenia [Unknown]
  - Renal failure acute [Recovering/Resolving]
  - Bone pain [Recovered/Resolved]
